FAERS Safety Report 19397051 (Version 13)
Quarter: 2021Q4

REPORT INFORMATION
  Report Type: Spontaneous
  Country: US (occurrence: US)
  Receive Date: 20210610
  Receipt Date: 20211112
  Transmission Date: 20220303
  Serious: No
  Sender: FDA-Public Use
  Company Number: US-DSJP-DSU-2021-117328

PATIENT
  Age: 35 Year
  Sex: Female

DRUGS (2)
  1. TURALIO [Suspect]
     Active Substance: PEXIDARTINIB HYDROCHLORIDE
     Indication: Synovitis
     Dosage: 200 MG, BID
     Route: 048
     Dates: start: 20210602
  2. TURALIO [Suspect]
     Active Substance: PEXIDARTINIB HYDROCHLORIDE
     Dosage: 400 MG, BID
     Route: 048
     Dates: start: 20210602

REACTIONS (37)
  - Abdominal pain [Not Recovered/Not Resolved]
  - Somnolence [Not Recovered/Not Resolved]
  - Fatigue [Recovered/Resolved]
  - Dysuria [Recovered/Resolved]
  - Pruritus [Recovered/Resolved]
  - Lip swelling [Recovered/Resolved]
  - Skin discolouration [Recovered/Resolved]
  - Hair colour changes [Recovered/Resolved]
  - Dyspepsia [Recovered/Resolved]
  - Dysgeusia [Recovered/Resolved]
  - Balance disorder [Recovered/Resolved]
  - Arthralgia [Recovered/Resolved]
  - Influenza [Recovered/Resolved]
  - White blood cell count decreased [Recovered/Resolved]
  - Eye oedema [Recovered/Resolved]
  - Dizziness [Not Recovered/Not Resolved]
  - Menstruation irregular [Recovered/Resolved]
  - Rash [Unknown]
  - Joint swelling [Unknown]
  - Weight increased [Unknown]
  - Skin fissures [Unknown]
  - Skin haemorrhage [Unknown]
  - Product dose omission issue [Unknown]
  - Urge incontinence [Not Recovered/Not Resolved]
  - Sleep disorder [Unknown]
  - Abdominal pain lower [Unknown]
  - Laboratory test abnormal [Unknown]
  - Depression [Recovered/Resolved]
  - Peripheral swelling [Recovered/Resolved]
  - Swelling face [Recovered/Resolved]
  - Hypersensitivity [Recovered/Resolved]
  - Headache [Not Recovered/Not Resolved]
  - Visual impairment [Recovered/Resolved]
  - Hypoacusis [Recovered/Resolved]
  - Memory impairment [Recovered/Resolved]
  - Ear pain [Unknown]
  - Drug intolerance [Unknown]

NARRATIVE: CASE EVENT DATE: 20210601
